FAERS Safety Report 6278983-7 (Version None)
Quarter: 2009Q3

REPORT INFORMATION
  Report Type: 
  Country: None (occurrence: None)
  Receive Date: 20090723
  Receipt Date: 20090714
  Transmission Date: 20100115
  Serious: Yes (Other)
  Sender: FDA-Public Use
  Company Number: US-WYE-H10152109

PATIENT
  Sex: Female
  Weight: 95.34 kg

DRUGS (5)
  1. PRISTIQ [Suspect]
     Indication: DEPRESSION
     Route: 048
     Dates: start: 20090615, end: 20090710
  2. TOPROL-XL [Concomitant]
     Dosage: UNKNOWN
     Route: 065
  3. METFORMIN HCL [Concomitant]
     Dosage: UNKNOWN
     Route: 065
  4. ATIVAN [Concomitant]
     Dosage: UNKNOWN
     Route: 065
  5. LISINOPRIL [Concomitant]
     Dosage: UNKNOWN
     Route: 065

REACTIONS (7)
  - ANXIETY [None]
  - DEPRESSION [None]
  - HYPERHIDROSIS [None]
  - NAUSEA [None]
  - PALPITATIONS [None]
  - PRURITUS [None]
  - SUICIDAL IDEATION [None]
